FAERS Safety Report 9792664 (Version 2)
Quarter: 2014Q2

REPORT INFORMATION
  Report Type: Spontaneous
  Country: US (occurrence: US)
  Receive Date: 20140102
  Receipt Date: 20140625
  Transmission Date: 20141212
  Serious: No
  Sender: FDA-Public Use
  Company Number: US-SA-2013SA102891

PATIENT
  Age: 33 Year
  Sex: Male

DRUGS (3)
  1. AUBAGIO [Suspect]
     Indication: MULTIPLE SCLEROSIS
     Route: 048
     Dates: start: 20130917, end: 201311
  2. VITAMIN D [Concomitant]
  3. METOPROLOL [Concomitant]

REACTIONS (1)
  - Heart rate increased [Unknown]
